FAERS Safety Report 13113565 (Version 1)
Quarter: 2017Q1

REPORT INFORMATION
  Report Type: Spontaneous
  Country: GB (occurrence: GB)
  Receive Date: 20170113
  Receipt Date: 20170113
  Transmission Date: 20170428
  Serious: Yes (Life-Threatening, Other)
  Sender: FDA-Public Use
  Company Number: GB-PFIZER INC-2017011147

PATIENT
  Age: 43 Year
  Sex: Female
  Weight: 130 kg

DRUGS (4)
  1. CITALOPRAM [Concomitant]
     Active Substance: CITALOPRAM HYDROBROMIDE
     Dosage: UNK
  2. FEANOLLA [Suspect]
     Active Substance: DESOGESTREL
     Indication: CONTRACEPTION
     Dosage: 75 MG, 1X/DAY
     Route: 048
     Dates: start: 2015, end: 2016
  3. DEPO-PROVERA [Suspect]
     Active Substance: MEDROXYPROGESTERONE ACETATE
     Indication: CONTRACEPTION
     Dosage: 1 DF, EVERY 3 MONTHS
     Route: 051
     Dates: start: 2014, end: 2015
  4. PROPRANOLOL [Concomitant]
     Active Substance: PROPRANOLOL HYDROCHLORIDE
     Dosage: UNK

REACTIONS (4)
  - Anxiety [Recovered/Resolved with Sequelae]
  - Depression suicidal [Recovered/Resolved with Sequelae]
  - Inappropriate schedule of drug administration [Unknown]
  - Hallucination, auditory [Recovered/Resolved with Sequelae]

NARRATIVE: CASE EVENT DATE: 2014
